FAERS Safety Report 10409938 (Version 1)
Quarter: 2014Q3

REPORT INFORMATION
  Report Type: Report from Study
  Country: ZA (occurrence: ZA)
  Receive Date: 20140826
  Receipt Date: 20140826
  Transmission Date: 20150326
  Serious: Yes (Other)
  Sender: FDA-Public Use
  Company Number: ZA-BAYER-2014-059961

PATIENT
  Sex: Female

DRUGS (2)
  1. NEURONTIN [Concomitant]
     Active Substance: GABAPENTIN
  2. BETAFERON [Suspect]
     Active Substance: INTERFERON BETA-1B
     Indication: MULTIPLE SCLEROSIS
     Dosage: 0.5 ML, UNK

REACTIONS (12)
  - Pruritus generalised [None]
  - Systemic lupus erythematosus [None]
  - Convulsion [None]
  - Depression [None]
  - Muscle spasms [None]
  - Hypoaesthesia [None]
  - Headache [None]
  - Rash erythematous [Recovering/Resolving]
  - Pruritus [Recovering/Resolving]
  - Fatigue [None]
  - Swollen tongue [None]
  - Arthralgia [None]

NARRATIVE: CASE EVENT DATE: 2008
